FAERS Safety Report 7033413-2 (Version None)
Quarter: 2010Q4

REPORT INFORMATION
  Report Type: 
  Country: None (occurrence: None)
  Receive Date: 20101007
  Receipt Date: 20100930
  Transmission Date: 20110411
  Serious: Yes (Other)
  Sender: FDA-Public Use
  Company Number: US-PFIZER INC-2010115589

PATIENT
  Sex: Female
  Weight: 87 kg

DRUGS (7)
  1. CHANTIX [Suspect]
     Indication: SMOKING CESSATION THERAPY
     Dosage: 0.5 MG, 1X/DAY
     Route: 048
     Dates: start: 20070101
  2. CHANTIX [Suspect]
     Dosage: 0.5 MG, 1X/DAY
     Route: 048
     Dates: start: 20100903, end: 20100901
  3. CHANTIX [Suspect]
     Dosage: 1 MG, 1X/DAY
     Dates: start: 20100901
  4. PAXIL [Suspect]
     Indication: DEPRESSION
     Dosage: 30 MG, 1X/DAY
     Route: 048
  5. PAXIL [Suspect]
     Indication: ANXIETY
  6. WELLBUTRIN [Suspect]
     Indication: DEPRESSION
     Dosage: 100 MG, 1X/DAY
  7. WELLBUTRIN [Suspect]
     Indication: ANXIETY

REACTIONS (2)
  - DEPRESSION [None]
  - VASOCONSTRICTION [None]
